FAERS Safety Report 23254263 (Version 1)
Quarter: 2023Q4

REPORT INFORMATION
  Report Type: Spontaneous
  Country: GB (occurrence: GB)
  Receive Date: 20231202
  Receipt Date: 20231202
  Transmission Date: 20240110
  Serious: Yes (Other)
  Sender: FDA-Public Use
  Company Number: GB-MLMSERVICE-20231115-4663823-1

PATIENT
  Age: 5 Month
  Sex: Female

DRUGS (3)
  1. ALLOPURINOL [Suspect]
     Active Substance: ALLOPURINOL
     Indication: Product used for unknown indication
  2. FOLATE SODIUM [Concomitant]
     Active Substance: FOLATE SODIUM
     Route: 048
  3. BIOTIN [Concomitant]
     Active Substance: BIOTIN
     Route: 048

REACTIONS (1)
  - Oroticaciduria [Unknown]
